FAERS Safety Report 10014408 (Version 2)
Quarter: 2014Q2

REPORT INFORMATION
  Report Type: Spontaneous
  Country: US (occurrence: US)
  Receive Date: 20140317
  Receipt Date: 20140508
  Transmission Date: 20141212
  Serious: Yes (Other)
  Sender: FDA-Public Use
  Company Number: US-BRISTOL-MYERS SQUIBB COMPANY-20412458

PATIENT
  Age: 60 Year
  Sex: Female
  Weight: 101.58 kg

DRUGS (8)
  1. SUSTIVA [Suspect]
     Indication: HIV INFECTION
     Route: 065
     Dates: start: 200707
  2. EPZICOM [Suspect]
     Indication: HIV INFECTION
     Route: 048
     Dates: start: 200707
  3. LEXAPRO [Concomitant]
  4. ATENOLOL [Concomitant]
  5. PRAVASTATIN MR [Concomitant]
  6. EZETIMIBE [Concomitant]
  7. ALENDRONATE [Concomitant]
  8. FISH OIL [Concomitant]

REACTIONS (3)
  - Pneumonia [Recovered/Resolved]
  - Bronchitis [Recovered/Resolved]
  - Influenza [Unknown]
